FAERS Safety Report 23932156 (Version 1)
Quarter: 2024Q2

REPORT INFORMATION
  Report Type: Spontaneous
  Country: AU (occurrence: AU)
  Receive Date: 20240603
  Receipt Date: 20240603
  Transmission Date: 20240716
  Serious: Yes (Hospitalization, Other)
  Sender: FDA-Public Use
  Company Number: AU-009507513-2405AUS009812

PATIENT
  Age: 86 Year
  Sex: Male
  Weight: 60.9 kg

DRUGS (12)
  1. KEYTRUDA [Suspect]
     Active Substance: PEMBROLIZUMAB
     Indication: Squamous cell carcinoma of skin
     Dosage: 400 MILLIGRAM, EVERY 6 WEEKS (CYCLICAL)
     Route: 042
     Dates: start: 20221122, end: 20221122
  2. KEYTRUDA [Suspect]
     Active Substance: PEMBROLIZUMAB
     Dosage: 400 MILLIGRAM, EVERY 6 WEEKS (CYCLICAL)
     Route: 042
     Dates: start: 20230328, end: 20230328
  3. CAFELKIBART [Suspect]
     Active Substance: CAFELKIBART
     Indication: Squamous cell carcinoma of skin
     Dosage: 3 MILLIGRAM/KILOGRAM, EVERY 2 WEEKS
     Route: 042
     Dates: start: 20221122, end: 20221122
  4. CAFELKIBART [Suspect]
     Active Substance: CAFELKIBART
     Dosage: 3 MILLIGRAM/KILOGRAM, EVERY 2 WEEKS
     Route: 042
     Dates: start: 20230328, end: 20230328
  5. RENNIE ANTACIDUM [Concomitant]
     Indication: Gastrooesophageal reflux disease
     Dosage: 1 TABLET, PRN
     Route: 048
     Dates: start: 2012
  6. HYPROMELLOSE, UNSPECIFIED [Concomitant]
     Active Substance: HYPROMELLOSE, UNSPECIFIED
     Indication: Dry eye
     Dosage: 2 DROPS, PR. OCUL (OP), PRN
     Dates: start: 2015
  7. POLYETHYLENE GLYCOL 3350\POTASSIUM CHLORIDE\SODIUM BICARBONATE\SODIUM [Concomitant]
     Active Substance: POLYETHYLENE GLYCOL 3350\POTASSIUM CHLORIDE\SODIUM BICARBONATE\SODIUM CHLORIDE
     Indication: Constipation
     Dosage: 2 SACHETS, PRN
     Route: 048
     Dates: start: 2021
  8. HYDROCORTISONE [Concomitant]
     Active Substance: HYDROCORTISONE
     Indication: Rash
     Dosage: DOSAGE NOT REPORTED, BID
     Route: 061
     Dates: start: 20230214
  9. FEXOFENADINE [Concomitant]
     Active Substance: FEXOFENADINE HYDROCHLORIDE
     Indication: Rash
     Dosage: 180 MG, PRN
     Route: 048
     Dates: start: 20230214
  10. PREDNISOLONE [Concomitant]
     Active Substance: PREDNISOLONE
     Indication: Rash
     Dosage: 25 MILLIGRAM, QD
     Route: 048
     Dates: start: 20230315, end: 20230328
  11. PREDNISOLONE [Concomitant]
     Active Substance: PREDNISOLONE
     Dosage: 10 MILLIGRAM, QD
     Route: 048
     Dates: start: 20230329
  12. PANTOPRAZOLE [Concomitant]
     Active Substance: PANTOPRAZOLE
     Indication: Prophylaxis
     Dosage: 20 MILLIGRAM, QD
     Dates: start: 20230228

REACTIONS (1)
  - Diverticulitis [Recovering/Resolving]

NARRATIVE: CASE EVENT DATE: 20230411
